FAERS Safety Report 16528464 (Version 1)
Quarter: 2019Q3

REPORT INFORMATION
  Report Type: Spontaneous
  Country: US (occurrence: US)
  Receive Date: 20190703
  Receipt Date: 20190703
  Transmission Date: 20191004
  Serious: No
  Sender: FDA-Public Use
  Company Number: US-TEVA-2019-US-1068003

PATIENT
  Sex: Female

DRUGS (2)
  1. TEMAZEPAM. [Interacting]
     Active Substance: TEMAZEPAM
     Route: 065
  2. TEMAZEPAM. [Suspect]
     Active Substance: TEMAZEPAM
     Indication: SLEEP TERROR

REACTIONS (4)
  - Drug interaction [Unknown]
  - Sleep terror [Unknown]
  - Erythema [Unknown]
  - Product use in unapproved indication [Unknown]

NARRATIVE: CASE EVENT DATE: 2018
